FAERS Safety Report 22846534 (Version 2)
Quarter: 2024Q1

REPORT INFORMATION
  Report Type: Spontaneous
  Country: US (occurrence: US)
  Receive Date: 20230822
  Receipt Date: 20240205
  Transmission Date: 20240410
  Serious: Yes (Life-Threatening, Hospitalization, Other)
  Sender: FDA-Public Use
  Company Number: None

PATIENT
  Age: 27 Year
  Sex: Female

DRUGS (6)
  1. PREDNISOLONE [Suspect]
     Active Substance: PREDNISOLONE
     Indication: Status migrainosus
     Dosage: 60 MILLIGRAM/DAY (300 MG, TOTAL)
     Route: 065
  2. TOPIRAMATE [Suspect]
     Active Substance: TOPIRAMATE
     Indication: Status migrainosus
     Dosage: UNK
     Route: 065
  3. AMITRIPTYLINE [Suspect]
     Active Substance: AMITRIPTYLINE
     Indication: Status migrainosus
     Dosage: UNK
     Route: 065
  4. ACETAZOLAMIDE [Suspect]
     Active Substance: ACETAZOLAMIDE
     Indication: Idiopathic intracranial hypertension
     Dosage: UNK
     Route: 065
  5. VALPROIC ACID [Suspect]
     Active Substance: VALPROIC ACID
     Indication: Status migrainosus
     Dosage: UNK
     Route: 065
  6. PFIZER-BIONTECH COVID-19 VACCINE [Concomitant]
     Active Substance: TOZINAMERAN
     Indication: COVID-19 immunisation
     Dosage: UNK
     Route: 065

REACTIONS (14)
  - Acute chest syndrome [Recovered/Resolved]
  - Fat embolism syndrome [Recovered/Resolved]
  - Brain stem microhaemorrhage [Recovered/Resolved]
  - Cerebellar microhaemorrhage [Recovered/Resolved]
  - Multiple organ dysfunction syndrome [Recovered/Resolved]
  - Respiratory failure [Recovered/Resolved]
  - Renal injury [Recovered/Resolved]
  - Cerebral microhaemorrhage [Recovered/Resolved]
  - Hepatocellular injury [Recovered/Resolved]
  - Sickle cell anaemia [Recovered/Resolved]
  - Sickle cell anaemia with crisis [Recovered/Resolved]
  - Numb chin syndrome [Unknown]
  - Drug ineffective [Unknown]
  - Off label use [Unknown]
